FAERS Safety Report 7862137-4 (Version None)
Quarter: 2011Q4

REPORT INFORMATION
  Report Type: 
  Country: None (occurrence: None)
  Receive Date: 20111027
  Receipt Date: 20101102
  Transmission Date: 20120403
  Serious: No
  Sender: FDA-Public Use
  Company Number: US-AMGEN-USASP2010002993

PATIENT
  Sex: Male

DRUGS (1)
  1. ENBREL [Suspect]
     Indication: PSORIATIC ARTHROPATHY
     Dates: start: 20030601

REACTIONS (6)
  - INJECTION SITE PAIN [None]
  - OCULAR HYPERAEMIA [None]
  - FATIGUE [None]
  - INJECTION SITE HAEMATOMA [None]
  - ROSACEA [None]
  - HAND FRACTURE [None]
